FAERS Safety Report 6526897-7 (Version None)
Quarter: 2010Q1

REPORT INFORMATION
  Report Type: 
  Country: None (occurrence: None)
  Receive Date: 20100104
  Receipt Date: 20100104
  Transmission Date: 20100710
  Serious: Yes (Life-Threatening)
  Sender: FDA-Public Use
  Company Number: None

PATIENT
  Age: 80 Year
  Sex: Female
  Weight: 81.6475 kg

DRUGS (1)
  1. HALOPERIDOL [Suspect]
     Dosage: DAILY
     Dates: start: 20091201, end: 20091231

REACTIONS (1)
  - ADVERSE DRUG REACTION [None]
